FAERS Safety Report 7745322-1 (Version None)
Quarter: 2011Q3

REPORT INFORMATION
  Report Type: 
  Country: None (occurrence: None)
  Receive Date: 20110908
  Receipt Date: 20110825
  Transmission Date: 20111222
  Serious: Yes (Other)
  Sender: FDA-Public Use
  Company Number: 2011P1008300

PATIENT
  Sex: Female
  Weight: 81.6475 kg

DRUGS (9)
  1. IBUPROFEN [Concomitant]
  2. FENTANYL [Suspect]
     Indication: PAIN
     Dosage: 1 PATCH, Q72H, TDER
     Route: 062
     Dates: start: 20110705, end: 20110725
  3. VITAMIN B-12 [Concomitant]
  4. SEROQUEL [Concomitant]
  5. FENTANYL [Concomitant]
  6. SOMA [Concomitant]
  7. ROXICODONE [Concomitant]
  8. XANAX [Concomitant]
  9. PROZAC [Concomitant]

REACTIONS (5)
  - VOMITING [None]
  - OVERDOSE [None]
  - RESPIRATORY DEPRESSION [None]
  - DIARRHOEA [None]
  - INCOHERENT [None]
